FAERS Safety Report 9096958 (Version 2)
Quarter: 2013Q2

REPORT INFORMATION
  Report Type: Spontaneous
  Country: US (occurrence: None)
  Receive Date: 20130124
  Receipt Date: 20130415
  Transmission Date: 20140414
  Serious: Yes (Death, Other)
  Sender: FDA-Public Use
  Company Number: 1301-083

PATIENT
  Age: 86 Year
  Sex: Male

DRUGS (1)
  1. EYLEA [Suspect]
     Indication: MACULAR DEGENERATION
     Dates: start: 20120529

REACTIONS (2)
  - Dementia [None]
  - Disease complication [None]
